FAERS Safety Report 6085597-0 (Version None)
Quarter: 2009Q1

REPORT INFORMATION
  Report Type: 
  Country: None (occurrence: None)
  Receive Date: 20090217
  Receipt Date: 19901001
  Transmission Date: 20090719
  Serious: Yes (Death)
  Sender: FDA-Public Use
  Company Number: 14806

PATIENT
  Age: 85 Year
  Sex: Female

DRUGS (1)
  1. TORADOL [Suspect]
     Indication: PROCEDURAL PAIN

REACTIONS (3)
  - DEATH [None]
  - GENERAL PHYSICAL HEALTH DETERIORATION [None]
  - UNEVALUABLE EVENT [None]
